FAERS Safety Report 8105712-4 (Version None)
Quarter: 2012Q1

REPORT INFORMATION
  Report Type: 
  Country: None (occurrence: None)
  Receive Date: 20120201
  Receipt Date: 20120119
  Transmission Date: 20120608
  Serious: Yes (Hospitalization)
  Sender: FDA-Public Use
  Company Number: US-ELI_LILLY_AND_COMPANY-US201101005570

PATIENT
  Sex: Female

DRUGS (10)
  1. FORTEO [Suspect]
     Dosage: 20 MG, DAILY (1/D)
     Route: 065
  2. LEVOTHYROXINE SODIUM [Concomitant]
  3. VYTORIN [Concomitant]
     Indication: BLOOD CHOLESTEROL INCREASED
  4. VITAMIN D [Concomitant]
  5. NORCO [Concomitant]
     Dosage: UNK, PRN
  6. SOMA [Concomitant]
     Dosage: UNK, PRN
  7. FORTEO [Suspect]
     Indication: OSTEOPOROSIS
     Dosage: 20 MG, DAILY (1/D)
     Route: 065
     Dates: start: 20101213
  8. FORTEO [Suspect]
     Dosage: 20 MG, DAILY (1/D)
     Route: 065
  9. METHADONE HCL [Concomitant]
     Dosage: 20 MG, QD
  10. METOPROLOL TARTRATE [Concomitant]

REACTIONS (23)
  - FEELING ABNORMAL [None]
  - SLEEP DISORDER [None]
  - INCORRECT PRODUCT STORAGE [None]
  - MALAISE [None]
  - NAUSEA [None]
  - DRUG DOSE OMISSION [None]
  - ERYTHEMA [None]
  - PAIN IN EXTREMITY [None]
  - BACK DISORDER [None]
  - MUSCULOSKELETAL DISORDER [None]
  - CHEST DISCOMFORT [None]
  - BACK PAIN [None]
  - ARTHRITIS [None]
  - DYSPNOEA [None]
  - ABDOMINAL DISCOMFORT [None]
  - SOMNOLENCE [None]
  - INJECTION SITE HAEMATOMA [None]
  - ANXIETY [None]
  - ARTHROPATHY [None]
  - POOR QUALITY SLEEP [None]
  - HYPOTHYROIDISM [None]
  - STRESS [None]
  - MIDDLE INSOMNIA [None]
